FAERS Safety Report 18171147 (Version 1)
Quarter: 2020Q3

REPORT INFORMATION
  Report Type: Spontaneous
  Country: US (occurrence: US)
  Receive Date: 20200819
  Receipt Date: 20200819
  Transmission Date: 20201103
  Serious: No
  Sender: FDA-Public Use
  Company Number: US-OREXO US, INC.-ORE202004-000034

PATIENT
  Age: 34 Year
  Sex: Female
  Weight: 83.92 kg

DRUGS (1)
  1. ZUBSOLV [Suspect]
     Active Substance: BUPRENORPHINE HYDROCHLORIDE\NALOXONE HYDROCHLORIDE
     Indication: DRUG DEPENDENCE
     Dosage: 1.5 TO 2 TABLETS A DAY

REACTIONS (4)
  - Weight decreased [Recovered/Resolved]
  - Wrong technique in product usage process [Unknown]
  - Drug withdrawal syndrome [Recovered/Resolved]
  - Product solubility abnormal [Unknown]
